FAERS Safety Report 11847550 (Version 1)
Quarter: 2015Q4

REPORT INFORMATION
  Report Type: Report from Study
  Country: BR (occurrence: BR)
  Receive Date: 20151217
  Receipt Date: 20151217
  Transmission Date: 20160305
  Serious: Yes (Hospitalization)
  Sender: FDA-Public Use
  Company Number: BR-UCBSA-2015031242

PATIENT
  Age: 57 Year
  Sex: Female
  Weight: 106 kg

DRUGS (10)
  1. DIPYRONE [Concomitant]
     Active Substance: DIPYRONE
     Indication: PYREXIA
  2. DIPYRONE [Concomitant]
     Active Substance: DIPYRONE
     Indication: PAIN
     Dosage: UNK, 6X/DAY (40 DROPS)
     Route: 048
     Dates: start: 20151116, end: 20151120
  3. NORIPURUM [Concomitant]
     Active Substance: IRON POLYMALTOSE
     Indication: ANAEMIA
     Dosage: 6 MG, WEEKLY (QW)
     Route: 042
     Dates: start: 20151106, end: 20151211
  4. PARACETAMOL [Concomitant]
     Active Substance: ACETAMINOPHEN
     Indication: PYREXIA
  5. CERTOLIZUMAB PEGOL [Suspect]
     Active Substance: CERTOLIZUMAB PEGOL
     Indication: RHEUMATOID ARTHRITIS
     Dosage: 200 MG, UNK
     Dates: start: 20150803, end: 20151104
  6. DIPYRONE [Concomitant]
     Active Substance: DIPYRONE
     Indication: PAIN
     Dosage: UNK
     Route: 042
     Dates: start: 20151104, end: 20151107
  7. DIPYRONE [Concomitant]
     Active Substance: DIPYRONE
     Indication: PYREXIA
  8. BACTRIM [Concomitant]
     Active Substance: SULFAMETHOXAZOLE\TRIMETHOPRIM
     Indication: PROPHYLAXIS
     Dosage: 800 MG, 2X/DAY (BID)
     Route: 048
     Dates: start: 20151104, end: 201512
  9. METHOTREXATE [Concomitant]
     Active Substance: METHOTREXATE
     Indication: RHEUMATOID ARTHRITIS
     Dosage: UNK, WEEKLY (QW)
     Route: 058
     Dates: start: 20150303, end: 20151104
  10. PARACETAMOL [Concomitant]
     Active Substance: ACETAMINOPHEN
     Indication: PAIN
     Dosage: UNK, 6X/DAY (40 DROPS)
     Route: 048
     Dates: start: 20151116, end: 20151120

REACTIONS (10)
  - Decreased appetite [Recovered/Resolved]
  - Hyperthermia [Recovered/Resolved]
  - Renal pain [Recovered/Resolved]
  - Anaemia [Recovering/Resolving]
  - Vomiting [Recovered/Resolved]
  - Application site swelling [Unknown]
  - Arthritis [Not Recovered/Not Resolved]
  - Kidney infection [Recovered/Resolved]
  - Diarrhoea [Recovered/Resolved]
  - Application site erythema [Unknown]

NARRATIVE: CASE EVENT DATE: 20150817
